FAERS Safety Report 13789246 (Version 1)
Quarter: 2017Q3

REPORT INFORMATION
  Report Type: Spontaneous
  Country: US (occurrence: US)
  Receive Date: 20170725
  Receipt Date: 20170725
  Transmission Date: 20171127
  Serious: No
  Sender: FDA-Public Use
  Company Number: US-UNITED THERAPEUTICS-UNT-2017-002190

PATIENT
  Age: 29 Year
  Sex: Female
  Weight: 58.96 kg

DRUGS (2)
  1. WARFARIN [Concomitant]
     Active Substance: WARFARIN
     Indication: PRODUCT USED FOR UNKNOWN INDICATION
  2. REMODULIN [Suspect]
     Active Substance: TREPROSTINIL
     Indication: PULMONARY ARTERIAL HYPERTENSION
     Dosage: 0.0555 ?G/KG, CONTINUING
     Route: 058
     Dates: start: 20151210

REACTIONS (2)
  - Sluggishness [Unknown]
  - Device issue [Unknown]

NARRATIVE: CASE EVENT DATE: 201702
